FAERS Safety Report 4837068-4 (Version None)
Quarter: 2005Q4

REPORT INFORMATION
  Report Type: 
  Country: None (occurrence: None)
  Receive Date: 20051121
  Receipt Date: 20051121
  Transmission Date: 20060501
  Serious: Yes (Hospitalization)
  Sender: FDA-Public Use
  Company Number: None

PATIENT
  Age: 71 Year
  Sex: Male
  Weight: 79.7 kg

DRUGS (2)
  1. CEFTAZIDIME [Suspect]
     Indication: PERITONITIS BACTERIAL
     Dosage: 1 GM
     Dates: start: 20050916, end: 20050921
  2. CEFAZOLIN [Suspect]
     Dosage: 1 GM

REACTIONS (4)
  - ASTHENIA [None]
  - BLOOD PRESSURE ORTHOSTATIC [None]
  - DIARRHOEA [None]
  - DIZZINESS [None]
